FAERS Safety Report 4626134-4 (Version None)
Quarter: 2005Q2

REPORT INFORMATION
  Report Type: 
  Country: None (occurrence: None)
  Receive Date: 20050404
  Receipt Date: 20050329
  Transmission Date: 20051028
  Serious: Yes (Death, Other)
  Sender: FDA-Public Use
  Company Number: PHBS2005JP04305

PATIENT
  Age: 83 Year
  Sex: Male

DRUGS (4)
  1. NORVASC [Concomitant]
     Dosage: 5 MG/D
     Route: 048
     Dates: start: 20021017, end: 20050122
  2. TAKEPRON [Concomitant]
     Dosage: 15 MG/D
     Route: 048
     Dates: start: 20040105, end: 20050122
  3. PANVITAN [Concomitant]
     Dosage: 2 G/D
     Route: 048
     Dates: start: 20040819, end: 20050122
  4. GLEEVEC [Suspect]
     Indication: CHRONIC MYELOID LEUKAEMIA
     Dosage: 100 MG/D
     Route: 048
     Dates: start: 20020903, end: 20050122

REACTIONS (2)
  - DEATH [None]
  - PNEUMONIA [None]
